FAERS Safety Report 9695345 (Version 2)
Quarter: 2014Q1

REPORT INFORMATION
  Report Type: Report from Study
  Country: GB (occurrence: GB)
  Receive Date: 20131119
  Receipt Date: 20140310
  Transmission Date: 20141002
  Serious: Yes (Hospitalization)
  Sender: FDA-Public Use
  Company Number: GB-009507513-1311GBR002914

PATIENT
  Age: 71 Year
  Sex: Female
  Weight: 74 kg

DRUGS (2)
  1. ALENDRONATE SODIUM [Suspect]
     Indication: OSTEOPOROSIS
     Dosage: UNK UNK, QW
     Dates: start: 20070116, end: 20131105
  2. LANSOPRAZOLE [Concomitant]
     Indication: GASTROINTESTINAL DISORDER
     Dosage: UNK, QD
     Dates: start: 20060601

REACTIONS (2)
  - Femoral neck fracture [Recovered/Resolved]
  - Dermatitis atopic [Not Recovered/Not Resolved]
